FAERS Safety Report 15615325 (Version 2)
Quarter: 2018Q4

REPORT INFORMATION
  Report Type: Spontaneous
  Country: FR (occurrence: FR)
  Receive Date: 20181114
  Receipt Date: 20181114
  Transmission Date: 20190205
  Serious: Yes (Hospitalization)
  Sender: FDA-Public Use
  Company Number: FR-TEVA-2018-FR-974868

PATIENT
  Age: 71 Year
  Sex: Male

DRUGS (2)
  1. CARBOPLATINE TEVA 10 MG/ML, SOLUTION POUR PERFUSION [Suspect]
     Active Substance: CARBOPLATIN
     Indication: OESOPHAGEAL CARCINOMA
     Route: 042
     Dates: start: 20181001, end: 20181001
  2. PACLITAXEL KABI 6 MG/ML, SOLUTION ? DILUER POUR PERFUSION [Suspect]
     Active Substance: PACLITAXEL
     Indication: OESOPHAGEAL CARCINOMA
     Route: 042
     Dates: start: 20181001, end: 20181001

REACTIONS (3)
  - Tachycardia [Recovered/Resolved]
  - Hypertension [Recovered/Resolved]
  - Hypersensitivity [Recovered/Resolved]

NARRATIVE: CASE EVENT DATE: 20181001
